FAERS Safety Report 6471686-5 (Version None)
Quarter: 2009Q4

REPORT INFORMATION
  Report Type: 
  Country: None (occurrence: None)
  Receive Date: 20091203
  Receipt Date: 20080305
  Transmission Date: 20100525
  Serious: Yes (Hospitalization)
  Sender: FDA-Public Use
  Company Number: US-ELI_LILLY_AND_COMPANY-US200803001353

PATIENT

DRUGS (4)
  1. BYETTA [Suspect]
     Dosage: 10 UG, 2/D
     Route: 064
     Dates: start: 20070101, end: 20070612
  2. INSULIN GLARGINE [Concomitant]
     Indication: DIABETES MELLITUS
     Dosage: 38 U, EACH EVENING
     Route: 064
     Dates: start: 20060101, end: 20071128
  3. AVANDAMET [Concomitant]
     Indication: DIABETES MELLITUS
     Dosage: 1000 MG, 2/D
     Route: 064
     Dates: start: 20060101, end: 20071128
  4. NITROFURANTOIN [Concomitant]
     Indication: URINARY TRACT INFECTION
     Route: 064
     Dates: start: 20070609, end: 20070615

REACTIONS (2)
  - DRUG EXPOSURE DURING PREGNANCY [None]
  - SEPSIS NEONATAL [None]
